FAERS Safety Report 15929593 (Version 2)
Quarter: 2019Q1

REPORT INFORMATION
  Report Type: Not Available
  Country: US (occurrence: US)
  Receive Date: 20190206
  Receipt Date: 20190225
  Transmission Date: 20190417
  Serious: Yes (Hospitalization)
  Sender: FDA-Public Use
  Company Number: US-NEUROCRINE BIOSCIENCES INC.-2019NBI00293

PATIENT
  Age: 59 Year

DRUGS (2)
  1. INGREZZA [Suspect]
     Active Substance: VALBENAZINE
     Route: 048
     Dates: start: 20190201
  2. INGREZZA [Suspect]
     Active Substance: VALBENAZINE
     Indication: TARDIVE DYSKINESIA
     Route: 048
     Dates: start: 20190124, end: 20190131

REACTIONS (5)
  - Abnormal behaviour [Unknown]
  - Fall [Not Recovered/Not Resolved]
  - Muscular weakness [Not Recovered/Not Resolved]
  - Somnolence [Not Recovered/Not Resolved]
  - Sleep talking [Unknown]

NARRATIVE: CASE EVENT DATE: 20190124
